FAERS Safety Report 24618987 (Version 1)
Quarter: 2024Q4

REPORT INFORMATION
  Report Type: Spontaneous
  Country: US (occurrence: US)
  Receive Date: 20241114
  Receipt Date: 20241114
  Transmission Date: 20250114
  Serious: No
  Sender: Haleon PLC
  Company Number: US-HALEON-2208892

PATIENT
  Age: 71 Year
  Sex: Female

DRUGS (2)
  1. SENSODYNE PRONAMEL INTENSIVE ENAMEL REPAIR WHITENING [Suspect]
     Active Substance: POTASSIUM NITRATE\SODIUM FLUORIDE
     Indication: Dental care
     Dates: start: 20241107, end: 20241114
  2. SENSODYNE PRONAMEL INTENSIVE ENAMEL REPAIR WHITENING [Suspect]
     Active Substance: POTASSIUM NITRATE\SODIUM FLUORIDE
     Indication: Tooth whitening

REACTIONS (5)
  - Tongue erythema [Not Recovered/Not Resolved]
  - Cheilitis [Not Recovered/Not Resolved]
  - Lip erythema [Not Recovered/Not Resolved]
  - Glossitis [Not Recovered/Not Resolved]
  - Oral discomfort [Not Recovered/Not Resolved]

NARRATIVE: CASE EVENT DATE: 20241110
